FAERS Safety Report 5975857-3 (Version None)
Quarter: 2008Q4

REPORT INFORMATION
  Report Type: 
  Country: None (occurrence: None)
  Receive Date: 20081202
  Receipt Date: 20081124
  Transmission Date: 20090506
  Serious: Yes (Other)
  Sender: FDA-Public Use
  Company Number: A0758508A

PATIENT
  Age: 52 Year
  Sex: Female
  Weight: 73 kg

DRUGS (5)
  1. FLONASE [Suspect]
     Indication: DRUG USE FOR UNKNOWN INDICATION
     Dosage: 2SPR PER DAY
     Route: 045
  2. NOVO-NAPROX [Concomitant]
  3. PANTALOC [Concomitant]
  4. PREXIGE [Concomitant]
  5. TYLENOL ARTHRITIS STRENGTH [Concomitant]

REACTIONS (2)
  - EYE DISORDER [None]
  - VISUAL IMPAIRMENT [None]
